FAERS Safety Report 7709142-6 (Version None)
Quarter: 2011Q3

REPORT INFORMATION
  Report Type: 
  Country: None (occurrence: None)
  Receive Date: 20110825
  Receipt Date: 20110815
  Transmission Date: 20111222
  Serious: Yes (Hospitalization)
  Sender: FDA-Public Use
  Company Number: US-ROCHE-797315

PATIENT
  Sex: Female

DRUGS (3)
  1. RIBAVIRIN [Suspect]
     Indication: HEPATITIS C
     Route: 065
     Dates: start: 20110808
  2. SOMA [Concomitant]
  3. PEGASYS [Suspect]
     Indication: HEPATITIS C
     Route: 065
     Dates: start: 20110808

REACTIONS (4)
  - PAIN [None]
  - NAUSEA [None]
  - BLOOD SODIUM DECREASED [None]
  - JOINT RANGE OF MOTION DECREASED [None]
